FAERS Safety Report 9575587 (Version 1)
Quarter: 2013Q4

REPORT INFORMATION
  Report Type: Spontaneous
  Country: US (occurrence: US)
  Receive Date: 20131001
  Receipt Date: 20131001
  Transmission Date: 20140711
  Serious: No
  Sender: FDA-Public Use
  Company Number: US-AMGEN-USASP2012083748

PATIENT
  Age: 67 Year
  Sex: Male
  Weight: 86.17 kg

DRUGS (12)
  1. ENBREL [Suspect]
     Indication: RHEUMATOID ARTHRITIS
     Dosage: 50 MG, WEEKLY
     Route: 058
  2. LEFLUNOMIDE [Concomitant]
     Dosage: 10 MG, UNK
  3. PREDNISONE [Concomitant]
     Dosage: 1 MG, UNK
  4. ULTRAM ER [Concomitant]
     Dosage: 100 MG, UNK
  5. COQ10                              /00517201/ [Concomitant]
     Dosage: 10 MG, UNK
  6. CRESTOR [Concomitant]
     Dosage: 10 MG, UNK
  7. LEXAPRO [Concomitant]
     Dosage: 5 MG, UNK
  8. LOTREL [Concomitant]
     Dosage: 10-20 MG, UNK
  9. ECHINACEA PURPUREA [Concomitant]
     Dosage: 80 MG, UNK
  10. FISH OIL [Concomitant]
     Dosage: UNK
  11. ASPIRIN [Concomitant]
     Dosage: 325 MG, UNK
  12. OSTEO-BI-FLEX [Concomitant]
     Dosage: 250-200, UNK, UNK

REACTIONS (2)
  - Headache [Unknown]
  - Cough [Unknown]
